FAERS Safety Report 5513334-4 (Version None)
Quarter: 2007Q4

REPORT INFORMATION
  Report Type: 
  Country: None (occurrence: None)
  Receive Date: 20071112
  Receipt Date: 20071031
  Transmission Date: 20080405
  Serious: Yes (Other)
  Sender: FDA-Public Use
  Company Number: NO-PFIZER INC-2007092378

PATIENT
  Sex: Female

DRUGS (2)
  1. LYRICA [Suspect]
     Indication: PAIN
     Route: 048
  2. PARALGIN FORTE [Concomitant]
     Route: 048

REACTIONS (1)
  - DRUG ABUSER [None]
